FAERS Safety Report 21927421 (Version 4)
Quarter: 2023Q2

REPORT INFORMATION
  Report Type: Report from Study
  Country: US (occurrence: None)
  Receive Date: 20230130
  Receipt Date: 20230616
  Transmission Date: 20230721
  Serious: Yes (Death, Hospitalization, Other)
  Sender: FDA-Public Use
  Company Number: 2023A024380

PATIENT
  Age: 59 Year
  Sex: Male
  Weight: 72 kg

DRUGS (2)
  1. CALQUENCE [Suspect]
     Active Substance: ACALABRUTINIB
     Dosage: ONE CAPSULE BY MOUTH TWICE A DAY
     Route: 048
     Dates: start: 202102
  2. BREZTRI [Suspect]
     Active Substance: BUDESONIDE\FORMOTEROL\GLYCOPYRROLATE
     Route: 055

REACTIONS (47)
  - Full blood count abnormal [Fatal]
  - Hypercalcaemia [Fatal]
  - Sepsis [Fatal]
  - Non-Hodgkin^s lymphoma recurrent [Fatal]
  - Myocardial ischaemia [Fatal]
  - Acute kidney injury [Fatal]
  - Troponin increased [Fatal]
  - Lactic acidosis [Fatal]
  - Multiple organ dysfunction syndrome [Fatal]
  - B-cell small lymphocytic lymphoma [Unknown]
  - Abscess limb [Unknown]
  - Upper respiratory tract infection [Unknown]
  - Mental status changes [Unknown]
  - Anaemia [Unknown]
  - Back pain [Unknown]
  - Cellulitis [Unknown]
  - Chest pain [Unknown]
  - Pulmonary congestion [Unknown]
  - Exposure to SARS-CoV-2 [Unknown]
  - Cough [Unknown]
  - Diarrhoea [Unknown]
  - Electrolyte imbalance [Unknown]
  - Fatigue [Unknown]
  - Asthenia [Unknown]
  - Pyrexia [Unknown]
  - Folliculitis [Unknown]
  - Glaucoma [Unknown]
  - Gynaecomastia [Unknown]
  - Haematochezia [Unknown]
  - Hypokalaemia [Unknown]
  - Hyponatraemia [Unknown]
  - Localised infection [Unknown]
  - Flank pain [Unknown]
  - Oedema peripheral [Unknown]
  - Lethargy [Unknown]
  - Lower respiratory tract infection [Unknown]
  - Pain in extremity [Unknown]
  - Neuropathy peripheral [Unknown]
  - Pulmonary mass [Unknown]
  - Sinusitis [Unknown]
  - Dyspnoea exertional [Unknown]
  - Limb injury [Unknown]
  - Infection [Unknown]
  - Peripheral swelling [Unknown]
  - Back pain [Unknown]
  - Sciatica [Unknown]
  - Tinea cruris [Unknown]

NARRATIVE: CASE EVENT DATE: 20220228
